FAERS Safety Report 17510885 (Version 2)
Quarter: 2022Q2

REPORT INFORMATION
  Report Type: Report from Study
  Country: US (occurrence: US)
  Receive Date: 20200306
  Receipt Date: 20220513
  Transmission Date: 20220720
  Serious: No
  Sender: FDA-Public Use
  Company Number: US-HARMONY BIOSCIENCES-2019HMY00098

PATIENT
  Age: 55 Year
  Sex: Male

DRUGS (4)
  1. WAKIX [Suspect]
     Active Substance: PITOLISANT HYDROCHLORIDE
     Indication: Narcolepsy
     Dosage: 8.9 MG, 1X/DAY
     Route: 048
     Dates: start: 201912, end: 201912
  2. WAKIX [Suspect]
     Active Substance: PITOLISANT HYDROCHLORIDE
     Indication: Cataplexy
  3. WAKIX [Suspect]
     Active Substance: PITOLISANT HYDROCHLORIDE
     Indication: Narcolepsy
     Dosage: 17.8 MG, 1X/DAY
     Route: 048
     Dates: start: 201912, end: 201912
  4. WAKIX [Suspect]
     Active Substance: PITOLISANT HYDROCHLORIDE
     Indication: Cataplexy
     Dosage: 35.6 MG, 1X/DAY
     Route: 048
     Dates: start: 20191218

REACTIONS (2)
  - Narcolepsy [Not Recovered/Not Resolved]
  - Drug ineffective [Not Recovered/Not Resolved]

NARRATIVE: CASE EVENT DATE: 20191201
